FAERS Safety Report 11352905 (Version 1)
Quarter: 2015Q3

REPORT INFORMATION
  Report Type: Spontaneous
  Country: US (occurrence: US)
  Receive Date: 20150807
  Receipt Date: 20150807
  Transmission Date: 20151125
  Serious: No
  Sender: FDA-Public Use
  Company Number: US-JNJFOC-20140400946

PATIENT
  Age: 68 Year
  Sex: Female
  Weight: 68.49 kg

DRUGS (2)
  1. MENS ROGAINE EXTRA STRENGTH [Suspect]
     Active Substance: MINOXIDIL
     Route: 061
  2. MENS ROGAINE EXTRA STRENGTH [Suspect]
     Active Substance: MINOXIDIL
     Indication: ALOPECIA
     Route: 061
     Dates: start: 20140326

REACTIONS (4)
  - Product expiration date issue [Unknown]
  - Incorrect dose administered [Unknown]
  - Product lot number issue [Unknown]
  - Wrong patient received medication [Unknown]
